FAERS Safety Report 8246617-8 (Version None)
Quarter: 2012Q1

REPORT INFORMATION
  Report Type: 
  Country: None (occurrence: None)
  Receive Date: 20120330
  Receipt Date: 20120322
  Transmission Date: 20120608
  Serious: Yes (Other)
  Sender: FDA-Public Use
  Company Number: CA-PFIZER INC-2012075587

PATIENT
  Age: 58 Year
  Sex: Female

DRUGS (4)
  1. VITAMIN TAB [Concomitant]
     Indication: ROUTINE HEALTH MAINTENANCE
     Dosage: UNK
  2. METOCLOPRAMIDE [Concomitant]
     Indication: ABDOMINAL DISCOMFORT
     Dosage: UNK
  3. XALATAN [Suspect]
     Indication: GLAUCOMA
     Dosage: 1 GTT IN LEFT EYE, 1X/DAY AT NIGHT
     Route: 047
     Dates: start: 20110101
  4. OMEPRAZOLE [Concomitant]
     Indication: GASTROOESOPHAGEAL REFLUX DISEASE
     Dosage: UNK
     Dates: start: 20110101

REACTIONS (2)
  - DRY EYE [None]
  - INFECTED CYST [None]
